FAERS Safety Report 23867775 (Version 1)
Quarter: 2024Q2

REPORT INFORMATION
  Report Type: Spontaneous
  Country: US (occurrence: None)
  Receive Date: 20240517
  Receipt Date: 20240517
  Transmission Date: 20240716
  Serious: No
  Sender: FDA-Public Use
  Company Number: US-Nobelpharma America, LLC-NPA-2024-00791

PATIENT
  Age: 8 Year
  Sex: Female

DRUGS (1)
  1. HYFTOR [Suspect]
     Active Substance: SIROLIMUS
     Indication: Congenital anomaly
     Route: 003
     Dates: start: 20231004

REACTIONS (3)
  - Skin haemorrhage [Unknown]
  - Off label use [None]
  - Off label use [None]

NARRATIVE: CASE EVENT DATE: 20240401
